FAERS Safety Report 9684646 (Version 1)
Quarter: 2013Q4

REPORT INFORMATION
  Report Type: Spontaneous
  Country: DE (occurrence: DE)
  Receive Date: 20131112
  Receipt Date: 20131112
  Transmission Date: 20140711
  Serious: Yes (Hospitalization)
  Sender: FDA-Public Use
  Company Number: DE-ASTRAZENECA-2013SE82262

PATIENT
  Age: 48 Year
  Sex: Female

DRUGS (14)
  1. SEROQUEL PROLONG [Suspect]
     Route: 048
     Dates: start: 20121121, end: 20121211
  2. SEROQUEL PROLONG [Interacting]
     Route: 048
     Dates: start: 20121212, end: 20121212
  3. SEROQUEL PROLONG [Interacting]
     Route: 048
     Dates: start: 20121213, end: 20121220
  4. SEROQUEL PROLONG [Interacting]
     Route: 048
     Dates: start: 20121221
  5. HCT [Interacting]
     Route: 048
     Dates: start: 2010, end: 20121207
  6. TAVOR [Interacting]
     Route: 048
     Dates: start: 20121110, end: 20121115
  7. TAVOR [Interacting]
     Route: 048
     Dates: start: 20121116, end: 20121128
  8. TAVOR [Interacting]
     Route: 048
     Dates: start: 20121129, end: 20121207
  9. TAVOR [Interacting]
     Route: 048
     Dates: start: 20121208, end: 20121209
  10. TAVOR [Interacting]
     Route: 048
     Dates: start: 20121210, end: 20121212
  11. TAVOR [Interacting]
     Route: 048
     Dates: start: 20121213, end: 20121214
  12. TAVOR [Interacting]
     Route: 048
     Dates: start: 20121215, end: 20121216
  13. VALSARTAN [Interacting]
     Route: 048
     Dates: start: 2010, end: 20121207
  14. CIPRALEX [Concomitant]
     Route: 048
     Dates: start: 20121115

REACTIONS (9)
  - Drug interaction [Unknown]
  - Fluid intake reduced [Unknown]
  - Loss of consciousness [Unknown]
  - Hypotension [Recovered/Resolved]
  - Bradycardia [Unknown]
  - Presyncope [Unknown]
  - Dizziness [Recovered/Resolved]
  - Asthenia [Unknown]
  - Vomiting [Unknown]
